FAERS Safety Report 25937009 (Version 3)
Quarter: 2025Q4

REPORT INFORMATION
  Report Type: Spontaneous
  Country: EU (occurrence: EU)
  Receive Date: 20251017
  Receipt Date: 20251021
  Transmission Date: 20260118
  Serious: Yes (Death, Other)
  Sender: REGENERON
  Company Number: EU-REGENERON PHARMACEUTICALS, INC.-2025-164889

PATIENT
  Age: 63 Year
  Sex: Female

DRUGS (1)
  1. LIBTAYO [Suspect]
     Active Substance: CEMIPLIMAB-RWLC
     Indication: Non-small cell lung cancer metastatic
     Dosage: UNK
     Dates: start: 20250218

REACTIONS (1)
  - Death [Fatal]
